FAERS Safety Report 15094115 (Version 1)
Quarter: 2018Q2

REPORT INFORMATION
  Report Type: Spontaneous
  Country: CA (occurrence: CA)
  Receive Date: 20180630
  Receipt Date: 20180630
  Transmission Date: 20180711
  Serious: Yes (Hospitalization)
  Sender: FDA-Public Use
  Company Number: CA-ABBVIE-18K-028-2401113-00

PATIENT
  Age: 16 Year
  Sex: Female
  Weight: 59.7 kg

DRUGS (4)
  1. BIOTIN [Concomitant]
     Active Substance: BIOTIN
     Indication: PRODUCT USED FOR UNKNOWN INDICATION
     Route: 048
  2. FOLIC ACID. [Concomitant]
     Active Substance: FOLIC ACID
     Indication: PRODUCT USED FOR UNKNOWN INDICATION
  3. HUMIRA [Suspect]
     Active Substance: ADALIMUMAB
     Indication: CROHN^S DISEASE
     Route: 058
     Dates: start: 20150325
  4. VITAMIN D3 [Concomitant]
     Active Substance: CHOLECALCIFEROL
     Indication: PRODUCT USED FOR UNKNOWN INDICATION
     Route: 048

REACTIONS (17)
  - Dizziness [Recovering/Resolving]
  - Sleep apnoea syndrome [Unknown]
  - Peritonsillar abscess [Unknown]
  - Mobility decreased [Unknown]
  - Musculoskeletal stiffness [Unknown]
  - Chest pain [Unknown]
  - Pharyngitis streptococcal [Recovering/Resolving]
  - Peritonsillitis [Recovering/Resolving]
  - Cough [Recovering/Resolving]
  - Joint stiffness [Unknown]
  - Urine output decreased [Unknown]
  - Speech disorder [Recovering/Resolving]
  - Chronic tonsillitis [Recovering/Resolving]
  - Sacroiliitis [Unknown]
  - Respiratory tract congestion [Recovering/Resolving]
  - Rhinitis [Recovering/Resolving]
  - Snoring [Unknown]

NARRATIVE: CASE EVENT DATE: 2018
